FAERS Safety Report 6269986-7 (Version None)
Quarter: 2009Q3

REPORT INFORMATION
  Report Type: 
  Country: None (occurrence: None)
  Receive Date: 20090716
  Receipt Date: 20090706
  Transmission Date: 20100115
  Serious: Yes (Hospitalization, Disabling)
  Sender: FDA-Public Use
  Company Number: ES-CELGENEUS-144-C5013-07090862

PATIENT
  Sex: Female
  Weight: 63.2 kg

DRUGS (10)
  1. CC-5013 [Suspect]
     Indication: MULTIPLE MYELOMA
     Route: 048
     Dates: start: 20070727, end: 20070816
  2. CC-5013 [Suspect]
     Route: 048
     Dates: start: 20070827, end: 20070914
  3. CC-5013 [Suspect]
     Route: 048
     Dates: start: 20071015, end: 20071122
  4. DEXAMETHASONE [Suspect]
     Indication: MULTIPLE MYELOMA
     Route: 048
     Dates: start: 20070727, end: 20070915
  5. DEXAMETHASONE [Suspect]
     Route: 048
     Dates: start: 20071005, end: 20071122
  6. ALPRAZOLAM [Concomitant]
     Indication: DRUG USE FOR UNKNOWN INDICATION
     Route: 065
     Dates: start: 20070726
  7. OMEPRAZOLE [Concomitant]
     Indication: DRUG USE FOR UNKNOWN INDICATION
     Route: 065
     Dates: start: 20070726
  8. ACETYLSALICYLIC ACID SRT [Concomitant]
     Indication: DRUG USE FOR UNKNOWN INDICATION
     Route: 065
     Dates: start: 20070726
  9. METFORMIN HCL [Concomitant]
     Indication: DRUG USE FOR UNKNOWN INDICATION
     Route: 065
     Dates: start: 20070906
  10. EPOETINE [Concomitant]
     Indication: DRUG USE FOR UNKNOWN INDICATION
     Route: 065
     Dates: start: 20070726

REACTIONS (4)
  - HYPERGLYCAEMIA [None]
  - OBSTRUCTIVE UROPATHY [None]
  - PULMONARY EMBOLISM [None]
  - WRIST FRACTURE [None]
